FAERS Safety Report 25334623 (Version 2)
Quarter: 2025Q2

REPORT INFORMATION
  Report Type: Report from Study
  Country: US (occurrence: US)
  Receive Date: 20250520
  Receipt Date: 20250528
  Transmission Date: 20250717
  Serious: Yes (Other)
  Sender: ABBVIE
  Company Number: US-ABBVIE-6282925

PATIENT
  Age: 77 Year
  Sex: Male
  Weight: 61.235 kg

DRUGS (1)
  1. RINVOQ [Suspect]
     Active Substance: UPADACITINIB
     Indication: Product used for unknown indication
     Route: 048

REACTIONS (3)
  - Arthritis [Unknown]
  - Mobility decreased [Unknown]
  - Joint injury [Unknown]

NARRATIVE: CASE EVENT DATE: 20230101
